FAERS Safety Report 18647982 (Version 1)
Quarter: 2020Q4

REPORT INFORMATION
  Report Type: Spontaneous
  Country: BR (occurrence: BR)
  Receive Date: 20201222
  Receipt Date: 20201222
  Transmission Date: 20210114
  Serious: Yes (Other)
  Sender: FDA-Public Use
  Company Number: BR-BAYER-2020-281027

PATIENT
  Age: 39 Year
  Sex: Female

DRUGS (3)
  1. IMENSE [Concomitant]
     Indication: DEPRESSION
     Dosage: 2 DF, QD
     Route: 048
     Dates: start: 202006
  2. MIRENA [Suspect]
     Active Substance: LEVONORGESTREL
     Indication: CONTRACEPTION
     Dosage: 20 ?G PER DAY CONTINUOUSLY
     Route: 015
     Dates: start: 20201016
  3. LOREDON [Concomitant]
     Active Substance: TRAZODONE HYDROCHLORIDE
     Indication: INSOMNIA
     Dosage: 1 DF, QD
     Route: 048

REACTIONS (7)
  - Suicidal ideation [Recovering/Resolving]
  - Metrorrhagia [Not Recovered/Not Resolved]
  - Seborrhoea [Not Recovered/Not Resolved]
  - Alopecia [Not Recovered/Not Resolved]
  - Anxiety [Recovering/Resolving]
  - Mood altered [Not Recovered/Not Resolved]
  - Acne [Not Recovered/Not Resolved]

NARRATIVE: CASE EVENT DATE: 20201016
